APPROVED DRUG PRODUCT: CLONAZEPAM
Active Ingredient: CLONAZEPAM
Strength: 0.5MG
Dosage Form/Route: TABLET, ORALLY DISINTEGRATING;ORAL
Application: A077194 | Product #003 | TE Code: AB
Applicant: BARR LABORATORIES INC
Approved: Aug 10, 2005 | RLD: No | RS: No | Type: RX